FAERS Safety Report 8925062 (Version 2)
Quarter: 2013Q1

REPORT INFORMATION
  Report Type: Spontaneous
  Country: US (occurrence: US)
  Receive Date: 20121126
  Receipt Date: 20130103
  Transmission Date: 20140127
  Serious: Yes (Other)
  Sender: FDA-Public Use
  Company Number: US-BAYER-2012-122422

PATIENT
  Age: 57 Year
  Sex: Female

DRUGS (19)
  1. BETASERON [Suspect]
     Indication: MULTIPLE SCLEROSIS
     Dosage: 0.3 MG, QOD
     Dates: start: 201211
  2. MECLIZINE [Concomitant]
     Dosage: 1 TAB, TID
  3. PROMETHAZINE [Concomitant]
     Indication: NAUSEA
     Dosage: 25 MG, 1 TAB EVERY 4 HOURS PRN
  4. FIORICET [Concomitant]
     Indication: MIGRAINE
     Dosage: 1 TAB, Q4HR
  5. LORAZEPAM [Concomitant]
     Indication: SLEEP DISORDER
     Dosage: 2 MG, 1 TAB HS
  6. METFORMIN [Concomitant]
     Dosage: 500 MG, 2 TABS QD
  7. BABY ASPIRIN [Concomitant]
     Dosage: 81 MG, QD
  8. DILTIAZEM [Concomitant]
     Dosage: 240 MG, QD
  9. GLIMEPIRIDE [Concomitant]
     Dosage: 2 MG, QD
  10. GABAPENTIN [Concomitant]
     Dosage: 2 TABS, TID
  11. AZO CRANBERRY [Concomitant]
     Dosage: 1 DF, QD
  12. FUROSEMIDE [FUROSEMIDE] [Concomitant]
     Dosage: 80 MG, QD
  13. LISINOPRIL [Concomitant]
     Dosage: 40 MG, 1 TAB QD
  14. CITALOPRAM [Concomitant]
     Dosage: 40 MG, QD
  15. PROPANOLOL [Concomitant]
     Dosage: 20 MG, 1 TAB QD
  16. POTASSIUM [Concomitant]
     Dosage: 8 MEQ, 2 CAPSULES QD
  17. LIPITOR [Concomitant]
     Dosage: 40 MG,1 TAB  QD
  18. BACLOFEN [Concomitant]
     Dosage: 10 MG, 1 TAB  TID
  19. LORTAB [Concomitant]
     Indication: PAIN
     Dosage: 1 TO 2 TABS EVERY 4 TO 6 HOURS

REACTIONS (2)
  - Blood glucose increased [Recovered/Resolved]
  - Blood glucose decreased [Recovered/Resolved]
